FAERS Safety Report 16134713 (Version 1)
Quarter: 2019Q1

REPORT INFORMATION
  Report Type: Report from Study
  Country: FI (occurrence: FI)
  Receive Date: 20190329
  Receipt Date: 20190329
  Transmission Date: 20190418
  Serious: Yes (Other)
  Sender: FDA-Public Use
  Company Number: FI-JNJFOC-20190336745

PATIENT
  Sex: Female

DRUGS (1)
  1. REMICADE [Suspect]
     Active Substance: INFLIXIMAB
     Indication: CROHN^S DISEASE
     Route: 042

REACTIONS (7)
  - Muscular weakness [Unknown]
  - Balance disorder [Unknown]
  - Altered state of consciousness [Unknown]
  - Temperature regulation disorder [Unknown]
  - Fatigue [Unknown]
  - Adverse reaction [Unknown]
  - Crohn^s disease [Unknown]
